FAERS Safety Report 7395179-6 (Version None)
Quarter: 2011Q1

REPORT INFORMATION
  Report Type: 
  Country: None (occurrence: None)
  Receive Date: 20110331
  Receipt Date: 20110331
  Transmission Date: 20110831
  Serious: Yes (Hospitalization)
  Sender: FDA-Public Use
  Company Number: None

PATIENT
  Age: 73 Year
  Sex: Male
  Weight: 83.1 kg

DRUGS (1)
  1. SULINDAC [Suspect]
     Indication: PAIN
     Dosage: 150 MG BID PO
     Route: 048
     Dates: start: 20110125, end: 20110303

REACTIONS (6)
  - GASTRIC HAEMORRHAGE [None]
  - MELAENA [None]
  - HAEMATEMESIS [None]
  - HAEMOGLOBIN DECREASED [None]
  - GASTRIC ULCER [None]
  - ABDOMINAL DISCOMFORT [None]
